FAERS Safety Report 8023815-X (Version None)
Quarter: 2012Q1

REPORT INFORMATION
  Report Type: 
  Country: None (occurrence: None)
  Receive Date: 20120103
  Receipt Date: 20120103
  Transmission Date: 20120608
  Serious: Yes (Disabling)
  Sender: FDA-Public Use
  Company Number: None

PATIENT
  Sex: Female
  Weight: 83.7 kg

DRUGS (11)
  1. BACLOFEN [Concomitant]
  2. AVONEX [Concomitant]
  3. SINGULAIR [Concomitant]
  4. ACTOS [Concomitant]
  5. FUROSEMIDE [Concomitant]
  6. ALBUTEROL SULFATE [Concomitant]
  7. IBUPROFEN [Concomitant]
  8. POTASSIUM CHLORIDE [Concomitant]
  9. RECLAST [Suspect]
     Indication: OSTEOPOROSIS
     Dosage: 5MG YEARLY INTRAVENOUSLY 0 2.5ML PER MIN.
     Route: 042
     Dates: start: 20110615
  10. ACID RELIEF EXTRA STRENGTH [Concomitant]
  11. RAMIPRIL [Concomitant]

REACTIONS (4)
  - MYALGIA [None]
  - ARTHRALGIA [None]
  - ABASIA [None]
  - LOBAR PNEUMONIA [None]
